FAERS Safety Report 12372110 (Version 2)
Quarter: 2016Q2

REPORT INFORMATION
  Report Type: Spontaneous
  Country: US (occurrence: US)
  Receive Date: 20160516
  Receipt Date: 20160527
  Transmission Date: 20160815
  Serious: Yes (Hospitalization, Other)
  Sender: FDA-Public Use
  Company Number: US-PFIZER INC-2016254563

PATIENT
  Sex: Male

DRUGS (3)
  1. AMIODARONE [Suspect]
     Active Substance: AMIODARONE
     Dosage: UNK
     Route: 041
  2. AMIODARONE [Suspect]
     Active Substance: AMIODARONE
     Dosage: 150 MG, UNK
     Route: 042
  3. TIKOSYN [Suspect]
     Active Substance: DOFETILIDE
     Dosage: UNK

REACTIONS (2)
  - Electrocardiogram QT prolonged [Unknown]
  - Medication monitoring error [Unknown]
